FAERS Safety Report 5870592-4 (Version None)
Quarter: 2008Q3

REPORT INFORMATION
  Report Type: 
  Country: None (occurrence: None)
  Receive Date: 20080904
  Receipt Date: 20080828
  Transmission Date: 20090109
  Serious: Yes (Hospitalization)
  Sender: FDA-Public Use
  Company Number: A0745493A

PATIENT
  Age: 63 Year
  Sex: Female
  Weight: 54.8 kg

DRUGS (2)
  1. LAPATINIB [Suspect]
     Dosage: 1250MG PER DAY
     Route: 048
     Dates: start: 20080612, end: 20080826
  2. CAPECITABINE [Suspect]
     Dosage: 1650MG PER DAY
     Route: 048
     Dates: start: 20071130, end: 20080826

REACTIONS (1)
  - PULMONARY EMBOLISM [None]
